FAERS Safety Report 11700049 (Version 1)
Quarter: 2015Q4

REPORT INFORMATION
  Report Type: Spontaneous
  Country: US (occurrence: None)
  Receive Date: 20151104
  Receipt Date: 20151104
  Transmission Date: 20160304
  Serious: Yes (Life-Threatening, Hospitalization)
  Sender: FDA-Public Use
  Company Number: None

PATIENT
  Age: 63 Year
  Sex: Female
  Weight: 131.54 kg

DRUGS (5)
  1. TRAZODONE [Suspect]
     Active Substance: TRAZODONE HYDROCHLORIDE
     Indication: SLEEP DISORDER
     Dosage: AT BEDTIME + AM; MOUTH WITH FOOD
     Route: 048
     Dates: start: 1990
  2. BYSTOLIC [Suspect]
     Active Substance: NEBIVOLOL HYDROCHLORIDE
     Indication: HYPERTENSION
     Dates: start: 20150615
  3. CALCIUM WITH VITAMIN D [Concomitant]
     Active Substance: CALCIUM\VITAMIN D
  4. TRAZODONE [Suspect]
     Active Substance: TRAZODONE HYDROCHLORIDE
     Indication: HYPERTENSION
     Dosage: AT BEDTIME + AM; MOUTH WITH FOOD
     Route: 048
     Dates: start: 1990
  5. TRAZODONE [Suspect]
     Active Substance: TRAZODONE HYDROCHLORIDE
     Indication: DEPRESSION
     Dosage: AT BEDTIME + AM; MOUTH WITH FOOD
     Route: 048
     Dates: start: 1990

REACTIONS (3)
  - Heart rate decreased [None]
  - Depression [None]
  - Therapy cessation [None]

NARRATIVE: CASE EVENT DATE: 20150616
